FAERS Safety Report 7877081-6 (Version None)
Quarter: 2011Q4

REPORT INFORMATION
  Report Type: 
  Country: None (occurrence: None)
  Receive Date: 20111031
  Receipt Date: 20110808
  Transmission Date: 20120403
  Serious: No
  Sender: FDA-Public Use
  Company Number: US-ABBOTT-11P-163-0844451-00

PATIENT
  Sex: Female
  Weight: 81.72 kg

DRUGS (3)
  1. ATIVAN [Concomitant]
     Indication: PRODUCT USED FOR UNKNOWN INDICATION
  2. CREON [Suspect]
     Indication: PANCREATITIS
     Dosage: 1-6 TIMES A DAY
     Dates: start: 20110701
  3. UNKNOWN PAIN MEDICATION [Concomitant]
     Indication: PRODUCT USED FOR UNKNOWN INDICATION

REACTIONS (6)
  - ABDOMINAL PAIN [None]
  - THROAT IRRITATION [None]
  - DIARRHOEA [None]
  - URINARY TRACT PAIN [None]
  - DYSPEPSIA [None]
  - BLADDER PAIN [None]
